FAERS Safety Report 7509157-7 (Version None)
Quarter: 2011Q2

REPORT INFORMATION
  Report Type: 
  Country: None (occurrence: None)
  Receive Date: 20110527
  Receipt Date: 20110519
  Transmission Date: 20111010
  Serious: Yes (Other)
  Sender: FDA-Public Use
  Company Number: AU-JNJFOC-20110405294

PATIENT
  Sex: Male
  Weight: 78 kg

DRUGS (2)
  1. CARDIZEM [Concomitant]
     Indication: BLOOD PRESSURE ABNORMAL
  2. STELARA [Suspect]
     Indication: PSORIASIS
     Route: 058
     Dates: start: 20110318

REACTIONS (1)
  - THROMBOSIS [None]
